FAERS Safety Report 8403435-5 (Version None)
Quarter: 2012Q1

REPORT INFORMATION
  Report Type: 
  Country: None (occurrence: None)
  Receive Date: 20120323
  Receipt Date: 20110428
  Transmission Date: 20120608
  Serious: Yes (Hospitalization)
  Sender: FDA-Public Use
  Company Number: 163-21880-11050033

PATIENT
  Age: 58 Year
  Sex: Female
  Weight: 87.5442 kg

DRUGS (7)
  1. COUMADIN [Concomitant]
  2. NORVASC [Concomitant]
  3. REVLIMID [Suspect]
     Indication: MULTIPLE MYELOMA
     Dosage: 25 MG, DAILY DAYS 1-21, PO
     Route: 048
     Dates: start: 20100415, end: 20100630
  4. DEXAMETHASONE [Concomitant]
  5. LEVOXYL [Concomitant]
  6. CENTRUM (CENTRUM) [Concomitant]
  7. CELEXA [Concomitant]

REACTIONS (1)
  - THROMBOSIS [None]
